FAERS Safety Report 10868689 (Version 1)
Quarter: 2015Q1

REPORT INFORMATION
  Report Type: Spontaneous
  Country: US (occurrence: US)
  Receive Date: 20150225
  Receipt Date: 20150225
  Transmission Date: 20150721
  Serious: No
  Sender: FDA-Public Use
  Company Number: US-TEVA-543116USA

PATIENT
  Age: 39 Year
  Sex: Female

DRUGS (1)
  1. CLARAVIS [Suspect]
     Active Substance: ISOTRETINOIN
     Route: 048

REACTIONS (5)
  - Abdominal pain [Unknown]
  - Joint swelling [Unknown]
  - Arthralgia [Unknown]
  - Abdominal discomfort [Unknown]
  - Epistaxis [Unknown]
